FAERS Safety Report 11191633 (Version 1)
Quarter: 2015Q2

REPORT INFORMATION
  Report Type: Spontaneous
  Country: JP (occurrence: None)
  Receive Date: 20150612
  Receipt Date: 20150612
  Transmission Date: 20150821
  Serious: Yes (Hospitalization)
  Sender: FDA-Public Use
  Company Number: FK201502617

PATIENT
  Age: 66 Year
  Sex: Male

DRUGS (1)
  1. FAMOTIDINE INJECTION (MANUFACTURER UNKNOWN) (FAMOTIDINE) FAMOTIDINE) [Suspect]
     Active Substance: FAMOTIDINE
     Indication: ABDOMINAL DISCOMFORT
     Dates: start: 201202

REACTIONS (3)
  - Haemodialysis [None]
  - Acute kidney injury [None]
  - Tubulointerstitial nephritis [None]
